FAERS Safety Report 7800066-2 (Version None)
Quarter: 2011Q4

REPORT INFORMATION
  Report Type: 
  Country: None (occurrence: None)
  Receive Date: 20111006
  Receipt Date: 20110927
  Transmission Date: 20120403
  Serious: Yes (Other)
  Sender: FDA-Public Use
  Company Number: AU-JNJFOC-20110911472

PATIENT
  Sex: Male

DRUGS (4)
  1. REMICADE [Suspect]
     Indication: PSORIASIS
     Route: 042
  2. ENBREL [Suspect]
     Indication: PSORIASIS
  3. STELARA [Suspect]
     Indication: PSORIASIS
     Route: 058
  4. HUMIRA [Suspect]
     Indication: PSORIASIS

REACTIONS (1)
  - MYCOBACTERIUM TUBERCULOSIS COMPLEX TEST POSITIVE [None]
